FAERS Safety Report 4567942-8 (Version None)
Quarter: 2005Q1

REPORT INFORMATION
  Report Type: 
  Country: None (occurrence: None)
  Receive Date: 20050202
  Receipt Date: 20040628
  Transmission Date: 20050727
  Serious: Yes (Other)
  Sender: FDA-Public Use
  Company Number: US-GLAXOSMITHKLINE-A0516235A

PATIENT
  Age: 83 Year
  Sex: Male

DRUGS (2)
  1. NAVELBINE [Suspect]
     Indication: NON-SMALL CELL LUNG CANCER
     Dosage: 43MG CYCLIC
     Route: 042
     Dates: start: 20040622, end: 20040622
  2. ALBUMIN (HUMAN) [Concomitant]

REACTIONS (1)
  - INJECTION SITE REACTION [None]
